FAERS Safety Report 13911507 (Version 1)
Quarter: 2017Q3

REPORT INFORMATION
  Report Type: Spontaneous
  Country: US (occurrence: US)
  Receive Date: 20170828
  Receipt Date: 20170828
  Transmission Date: 20171127
  Serious: No
  Sender: FDA-Public Use
  Company Number: US-ROCHE-1141410

PATIENT
  Age: 13 Year
  Sex: Female
  Weight: 31.3 kg

DRUGS (3)
  1. LEVOXYL [Concomitant]
     Active Substance: LEVOTHYROXINE SODIUM
  2. NUTROPIN [Suspect]
     Active Substance: SOMATROPIN
     Indication: TURNER^S SYNDROME
     Dosage: 0.375 MG/KG/WK
     Route: 058
     Dates: start: 19971106
  3. PREMARIN [Concomitant]
     Active Substance: ESTROGENS, CONJUGATED

REACTIONS (8)
  - Vomiting [Unknown]
  - Diarrhoea [Unknown]
  - Conjunctivitis [Unknown]
  - Sinusitis [Unknown]
  - Injection site extravasation [Unknown]
  - Gastroenteritis viral [Unknown]
  - Back pain [Recovered/Resolved]
  - Osteochondrosis [Unknown]

NARRATIVE: CASE EVENT DATE: 199811
